FAERS Safety Report 5645479-2 (Version None)
Quarter: 2008Q1

REPORT INFORMATION
  Report Type: 
  Country: None (occurrence: None)
  Receive Date: 20080229
  Receipt Date: 20070925
  Transmission Date: 20080703
  Serious: No
  Sender: FDA-Public Use
  Company Number: US-BRISTOL-MYERS SQUIBB COMPANY-13919162

PATIENT
  Age: 60 Year
  Sex: Female
  Weight: 59 kg

DRUGS (13)
  1. TAXOL [Suspect]
     Indication: NEOPLASM MALIGNANT
     Route: 042
     Dates: start: 20070925
  2. DILAUDID [Concomitant]
  3. REGLAN [Concomitant]
  4. MEGACE [Concomitant]
  5. CARAFATE [Concomitant]
  6. TRANXENE [Concomitant]
     Route: 048
  7. LIDOCAINE [Concomitant]
  8. MAALOX [Concomitant]
  9. ERBITUX [Concomitant]
     Route: 042
     Dates: start: 20070901
  10. ALOXI [Concomitant]
     Indication: PREMEDICATION
     Route: 042
     Dates: start: 20070901
  11. DECADRON [Concomitant]
     Indication: PREMEDICATION
     Route: 042
     Dates: start: 20070901
  12. PEPCID [Concomitant]
     Indication: PREMEDICATION
     Route: 042
     Dates: start: 20070901
  13. BENADRYL [Concomitant]
     Indication: PREMEDICATION
     Route: 042
     Dates: start: 20070901

REACTIONS (2)
  - HEADACHE [None]
  - TUNNEL VISION [None]
